FAERS Safety Report 20338577 (Version 1)
Quarter: 2022Q1

REPORT INFORMATION
  Report Type: Spontaneous
  Country: US (occurrence: US)
  Receive Date: 20220116
  Receipt Date: 20220116
  Transmission Date: 20220423
  Serious: Yes (Death, Other)
  Sender: FDA-Public Use
  Company Number: US-AMGEN-USASP2022006072

PATIENT
  Age: 77 Year
  Sex: Male

DRUGS (1)
  1. LUMAKRAS [Suspect]
     Active Substance: SOTORASIB
     Indication: Lung adenocarcinoma
     Dosage: 960 MILLIGRAM, BID
     Route: 065

REACTIONS (4)
  - Death [Fatal]
  - Lung adenocarcinoma [Unknown]
  - Drug resistance [Unknown]
  - Gene mutation [Unknown]
